FAERS Safety Report 19793622 (Version 2)
Quarter: 2021Q3

REPORT INFORMATION
  Report Type: Spontaneous
  Country: US (occurrence: US)
  Receive Date: 20210906
  Receipt Date: 20210914
  Transmission Date: 20211014
  Serious: Yes (Other)
  Sender: FDA-Public Use
  Company Number: US-PFIZER INC-202101137674

PATIENT
  Age: 62 Year
  Sex: Male
  Weight: 99.79 kg

DRUGS (2)
  1. SOLU?MEDROL [Suspect]
     Active Substance: METHYLPREDNISOLONE SODIUM SUCCINATE
     Indication: AUTOIMMUNE ARTHRITIS
     Dosage: 48 MG
  2. SOLU?MEDROL [Suspect]
     Active Substance: METHYLPREDNISOLONE SODIUM SUCCINATE
     Dosage: 16 MG, DAILY (HE IS CURRENTLY TAPERING OFF AT 16 MG A DAY)

REACTIONS (8)
  - Vertigo [Unknown]
  - Presyncope [Unknown]
  - Muscular weakness [Unknown]
  - Brain neoplasm [Unknown]
  - Fall [Unknown]
  - Haemorrhage [Unknown]
  - Balance disorder [Unknown]
  - Skin atrophy [Unknown]
